FAERS Safety Report 21385770 (Version 2)
Quarter: 2022Q4

REPORT INFORMATION
  Report Type: Spontaneous
  Country: US (occurrence: US)
  Receive Date: 20220928
  Receipt Date: 20221021
  Transmission Date: 20230112
  Serious: No
  Sender: FDA-Public Use
  Company Number: US-BEH-2022149860

PATIENT
  Sex: Female

DRUGS (1)
  1. PRIVIGEN [Suspect]
     Active Substance: HUMAN IMMUNOGLOBULIN G
     Indication: Follicular lymphoma
     Dosage: 20 GRAM, QMT, EVERY 4 WEEKS
     Route: 042
     Dates: start: 20220603

REACTIONS (3)
  - Rhinitis [Unknown]
  - Viral infection [Unknown]
  - Bacterial infection [Unknown]
